FAERS Safety Report 4646333-5 (Version None)
Quarter: 2005Q2

REPORT INFORMATION
  Report Type: 
  Country: None (occurrence: None)
  Receive Date: 20050425
  Receipt Date: 20050411
  Transmission Date: 20051028
  Serious: No
  Sender: FDA-Public Use
  Company Number: THYM-10472

PATIENT

DRUGS (2)
  1. THYMOGLOBULIN [Suspect]
     Indication: TRANSPLANT
  2. THYMOGLOBULIN [Suspect]
     Indication: TRANSPLANT REJECTION

REACTIONS (2)
  - ANTIBODY TEST POSITIVE [None]
  - SERUM SICKNESS [None]
